FAERS Safety Report 20532902 (Version 3)
Quarter: 2022Q2

REPORT INFORMATION
  Report Type: Spontaneous
  Country: CA (occurrence: CA)
  Receive Date: 20220301
  Receipt Date: 20220428
  Transmission Date: 20220721
  Serious: Yes (Other)
  Sender: FDA-Public Use
  Company Number: CA-PFIZER INC-202200296662

PATIENT
  Age: 9 Year
  Sex: Female

DRUGS (6)
  1. SOMATROPIN [Suspect]
     Active Substance: SOMATROPIN
     Indication: Turner^s syndrome
     Dosage: 850 UG, 6DAYS A WEEKS (DISCONTINUED)
     Route: 058
     Dates: start: 201804
  2. SOMATROPIN [Suspect]
     Active Substance: SOMATROPIN
     Dosage: 1100 UG, 6DAYS A WEEKS
     Route: 058
  3. SOMATROPIN [Suspect]
     Active Substance: SOMATROPIN
     Dosage: 5.3 MG PEN INJECT 1.1MG, 6 DAYS A WEEK
     Route: 058
  4. CHOLECALCIFEROL [Concomitant]
     Active Substance: CHOLECALCIFEROL
     Dosage: UNK
  5. VITAMIN D3 [Concomitant]
     Active Substance: CHOLECALCIFEROL
     Dosage: 800 ML, DAILY, 400 UNIT/ML
     Route: 048
  6. SYNTHROID [Concomitant]
     Active Substance: LEVOTHYROXINE SODIUM
     Indication: Hypothyroidism
     Dosage: 37.5 MCG, DAILY
     Route: 048

REACTIONS (4)
  - Fall [Unknown]
  - Humerus fracture [Unknown]
  - Primary hypothyroidism [Not Recovered/Not Resolved]
  - Constipation [Recovered/Resolved]

NARRATIVE: CASE EVENT DATE: 20211101
